FAERS Safety Report 8202888-5 (Version None)
Quarter: 2012Q1

REPORT INFORMATION
  Report Type: 
  Country: None (occurrence: None)
  Receive Date: 20120312
  Receipt Date: 20120312
  Transmission Date: 20120608
  Serious: Yes (Other)
  Sender: FDA-Public Use
  Company Number: None

PATIENT
  Age: 74 Year
  Sex: Female
  Weight: 72.574 kg

DRUGS (1)
  1. CIPROFLOXACIN [Suspect]
     Indication: CYSTITIS
     Route: 048
     Dates: start: 20101122, end: 20101128

REACTIONS (6)
  - GAIT DISTURBANCE [None]
  - INSOMNIA [None]
  - FEELING HOT [None]
  - VIBRATORY SENSE INCREASED [None]
  - DRUG INEFFECTIVE [None]
  - PAIN IN EXTREMITY [None]
